FAERS Safety Report 13383392 (Version 3)
Quarter: 2017Q2

REPORT INFORMATION
  Report Type: Spontaneous
  Country: JP (occurrence: JP)
  Receive Date: 20170329
  Receipt Date: 20170420
  Transmission Date: 20170830
  Serious: Yes (Death, Hospitalization)
  Sender: FDA-Public Use
  Company Number: JP-PFIZER INC-2017136060

PATIENT
  Age: 77 Year
  Sex: Male

DRUGS (19)
  1. URALYT /06402701/ [Concomitant]
     Active Substance: POTASSIUM CITRATE\TRISODIUM CITRATE DIHYDRATE
     Dosage: UNK UNK, TWICE DAILY, AFTER BREAKFAST AND SUPPER
     Route: 065
  2. AMLODIPINE [Concomitant]
     Active Substance: AMLODIPINE BESYLATE
     Dosage: UNK UNK, ONCE DAILY, AFTER BREAKFAST
     Route: 065
  3. RIMATIL [Concomitant]
     Active Substance: BUCILLAMINE
     Dosage: 100 MG, 2X/DAY
     Route: 048
     Dates: start: 20141004, end: 201412
  4. PREDONINE [Concomitant]
     Active Substance: PREDNISOLONE
     Indication: RHEUMATOID ARTHRITIS
     Dosage: 5 MG, 1X/DAY
     Route: 065
     Dates: start: 20140924, end: 20141211
  5. OMEPRAZON [Concomitant]
     Active Substance: OMEPRAZOLE
     Dosage: UNK UNK, ONCE DAILY, AFTER BREAKFAST
     Route: 065
  6. MYSLEE [Concomitant]
     Active Substance: ZOLPIDEM TARTRATE
     Dosage: 2.5 MG, 1X/DAY
     Route: 065
  7. RIMATIL [Concomitant]
     Active Substance: BUCILLAMINE
     Indication: RHEUMATOID ARTHRITIS
     Dosage: 100 MG, 1X/DAY
     Route: 048
     Dates: start: 20140924, end: 20141003
  8. LIPITOR [Concomitant]
     Active Substance: ATORVASTATIN CALCIUM
     Dosage: UNK UNK, ONCE DAILY, AFTER SUPPER
     Route: 065
  9. NERIPROCT [Concomitant]
     Active Substance: DIFLUCORTOLONE VALERATE\LIDOCAINE
     Dosage: UNK UNK, TWICE DAILY
     Route: 061
  10. HIRNAMIN /00038601/ [Concomitant]
     Active Substance: LEVOMEPROMAZINE
     Dosage: 1.25 MG, 1X/DAY
     Route: 065
  11. MAGNESIUM OXIDE. [Concomitant]
     Active Substance: MAGNESIUM OXIDE
     Dosage: UNK UNK, AFTER MEAL
     Route: 065
  12. CELECOX [Suspect]
     Active Substance: CELECOXIB
     Indication: RHEUMATOID ARTHRITIS
     Dosage: 100 MG, 2X/DAY
     Route: 048
     Dates: start: 20140924, end: 20141114
  13. PAXIL [Concomitant]
     Active Substance: PAROXETINE HYDROCHLORIDE
     Dosage: 5 MG, ONCE DAILY AFTER BREAKFAST
     Route: 065
  14. CELECOX [Suspect]
     Active Substance: CELECOXIB
     Dosage: 100 MG, 1X/DAY
     Route: 048
     Dates: start: 20141115, end: 20141211
  15. HALRACK [Concomitant]
     Active Substance: TRIAZOLAM
     Dosage: 0.125 MG, AT BEDTIME
     Route: 065
  16. FLIVAS [Concomitant]
     Active Substance: NAFTOPIDIL
     Dosage: 25 MG, TWICE DAILY, AFTER BREAKFAST AND SUPPER
     Route: 065
  17. CELECOX [Suspect]
     Active Substance: CELECOXIB
     Dosage: 100 MG, 2X/DAY
     Route: 048
     Dates: start: 20141212, end: 201412
  18. PREDONINE [Concomitant]
     Active Substance: PREDNISOLONE
     Dosage: 2.5 MG, 1X/DAY
     Route: 048
     Dates: start: 20141212, end: 201412
  19. DAIBOFUTO /07973501/ [Concomitant]
     Dosage: UNK UNK, TWICE DAILY, BEFORE BREAKFAST AND SUPPER
     Route: 065

REACTIONS (1)
  - Interstitial lung disease [Fatal]

NARRATIVE: CASE EVENT DATE: 201412
